FAERS Safety Report 5073124-6 (Version None)
Quarter: 2006Q3

REPORT INFORMATION
  Report Type: 
  Country: None (occurrence: None)
  Receive Date: 20060711
  Receipt Date: 20060505
  Transmission Date: 20061208
  Serious: No
  Sender: FDA-Public Use
  Company Number: 2006S1000092

PATIENT
  Sex: Male

DRUGS (2)
  1. CUBICIN [Suspect]
     Indication: CELLULITIS GANGRENOUS
  2. LOVENOX [Concomitant]

REACTIONS (1)
  - THROMBOCYTHAEMIA [None]
